FAERS Safety Report 4755869-8 (Version None)
Quarter: 2005Q3

REPORT INFORMATION
  Report Type: 
  Country: None (occurrence: None)
  Receive Date: 20050830
  Receipt Date: 20050629
  Transmission Date: 20060218
  Serious: No
  Sender: FDA-Public Use
  Company Number: US-BRISTOL-MYERS SQUIBB COMPANY-13019443

PATIENT
  Age: 41 Year
  Sex: Female
  Weight: 60 kg

DRUGS (9)
  1. ERBITUX [Suspect]
     Indication: COLON CANCER METASTATIC
     Route: 042
  2. BENADRYL [Concomitant]
     Indication: PREMEDICATION
     Route: 042
  3. NORMAL SALINE [Concomitant]
     Route: 042
  4. AMBIEN [Concomitant]
  5. CELEBREX [Concomitant]
  6. NEXIUM [Concomitant]
  7. BACTRIM [Concomitant]
  8. CENESTIN [Concomitant]
  9. FEOSOL [Concomitant]

REACTIONS (1)
  - SKIN CHAPPED [None]
